FAERS Safety Report 6970831-2 (Version None)
Quarter: 2010Q3

REPORT INFORMATION
  Report Type: 
  Country: None (occurrence: None)
  Receive Date: 20100908
  Receipt Date: 20100809
  Transmission Date: 20110219
  Serious: Yes (Other)
  Sender: FDA-Public Use
  Company Number: A0879854A

PATIENT
  Sex: Male

DRUGS (3)
  1. LAMICTAL [Suspect]
     Indication: BIPOLAR II DISORDER
     Dosage: 200MGD PER DAY
     Route: 048
     Dates: start: 20050601
  2. ESKALITH CR [Suspect]
     Indication: BIPOLAR II DISORDER
     Dosage: 900MGD PER DAY
     Route: 048
     Dates: start: 20080624
  3. NONE [Concomitant]

REACTIONS (3)
  - ADVERSE EVENT [None]
  - BRONCHOPNEUMONIA [None]
  - SEMEN ANALYSIS ABNORMAL [None]
